FAERS Safety Report 20879419 (Version 1)
Quarter: 2022Q2

REPORT INFORMATION
  Report Type: Spontaneous
  Country: US (occurrence: US)
  Receive Date: 20220526
  Receipt Date: 20220526
  Transmission Date: 20220721
  Serious: No
  Sender: FDA-Public Use
  Company Number: US-RADIUS HEALTH INC.-2021US004453

PATIENT
  Age: 64 Year
  Sex: Female

DRUGS (1)
  1. TYMLOS [Suspect]
     Active Substance: ABALOPARATIDE
     Indication: Product used for unknown indication
     Dosage: 80 MCG, DAILY
     Route: 058
     Dates: start: 20210927

REACTIONS (11)
  - Dysgeusia [Unknown]
  - Syncope [Unknown]
  - Energy increased [Unknown]
  - Palpitations [Unknown]
  - Headache [Unknown]
  - Injection site pain [Unknown]
  - Dizziness [Unknown]
  - Pain [Unknown]
  - Heart rate increased [Unknown]
  - Injection site haemorrhage [Unknown]
  - Product quality issue [Unknown]

NARRATIVE: CASE EVENT DATE: 20210927
